FAERS Safety Report 17984443 (Version 1)
Quarter: 2020Q3

REPORT INFORMATION
  Report Type: Spontaneous
  Country: US (occurrence: US)
  Receive Date: 20200706
  Receipt Date: 20200706
  Transmission Date: 20201103
  Serious: No
  Sender: FDA-Public Use
  Company Number: None

PATIENT
  Age: 70 Year
  Sex: Female
  Weight: 81.6 kg

DRUGS (10)
  1. CARBOXYMETHYLCELLULOSE OPHTHALMIC DROPS [Concomitant]
     Dates: start: 20200628, end: 20200701
  2. CISATRACURIUM. [Concomitant]
     Active Substance: CISATRACURIUM
     Dates: start: 20200628, end: 20200701
  3. REMDESIVIR. [Suspect]
     Active Substance: REMDESIVIR
     Indication: COVID-19
     Route: 041
     Dates: start: 20200626, end: 20200627
  4. FENTANYL. [Concomitant]
     Active Substance: FENTANYL
     Dates: start: 20200628
  5. DEXMEDETOMIDINE. [Concomitant]
     Active Substance: DEXMEDETOMIDINE
     Dates: start: 20200628
  6. HYDRALAZINE [Concomitant]
     Active Substance: HYDRALAZINE HYDROCHLORIDE
     Dates: start: 20200702, end: 20200704
  7. PROPOFOL. [Concomitant]
     Active Substance: PROPOFOL
     Dates: start: 20200628, end: 20200630
  8. REMDESIVIR. [Suspect]
     Active Substance: REMDESIVIR
     Indication: COVID-19
     Route: 041
     Dates: start: 20200628, end: 20200703
  9. ENOXAPARIN [Concomitant]
     Active Substance: ENOXAPARIN
     Dates: start: 20200628
  10. INSULIN [Concomitant]
     Active Substance: INSULIN NOS
     Dates: start: 20200628

REACTIONS (4)
  - Dyspnoea [None]
  - Pyrexia [None]
  - Cough [None]
  - Asthenia [None]

NARRATIVE: CASE EVENT DATE: 20200703
